FAERS Safety Report 16355178 (Version 2)
Quarter: 2019Q2

REPORT INFORMATION
  Report Type: Spontaneous
  Country: GB (occurrence: GB)
  Receive Date: 20190524
  Receipt Date: 20190621
  Transmission Date: 20190711
  Serious: Yes (Death, Other)
  Sender: FDA-Public Use
  Company Number: GB-JAZZ-2019-GB-006152

PATIENT
  Age: 65 Year
  Sex: Male

DRUGS (1)
  1. VYXEOS [Suspect]
     Active Substance: CYTARABINE\DAUNORUBICIN
     Indication: ACUTE MYELOID LEUKAEMIA
     Dosage: UNK

REACTIONS (3)
  - Neutropenic sepsis [Fatal]
  - Bradycardia [Unknown]
  - Bundle branch block right [Unknown]

NARRATIVE: CASE EVENT DATE: 20190429
